FAERS Safety Report 6050060-X (Version None)
Quarter: 2009Q1

REPORT INFORMATION
  Report Type: 
  Country: None (occurrence: None)
  Receive Date: 20090121
  Receipt Date: 20090105
  Transmission Date: 20090719
  Serious: Yes (Hospitalization)
  Sender: FDA-Public Use
  Company Number: SPI200900004

PATIENT

DRUGS (1)
  1. AMITIZA [Suspect]

REACTIONS (1)
  - VOLVULUS [None]
